FAERS Safety Report 12703457 (Version 1)
Quarter: 2016Q3

REPORT INFORMATION
  Report Type: Spontaneous
  Country: GB (occurrence: GB)
  Receive Date: 20160831
  Receipt Date: 20160831
  Transmission Date: 20161109
  Serious: Yes (Other)
  Sender: FDA-Public Use
  Company Number: GB-PFIZER INC-2016406345

PATIENT
  Age: 32 Year
  Sex: Male
  Weight: 99 kg

DRUGS (2)
  1. VARENICLINE TARTRATE [Suspect]
     Active Substance: VARENICLINE TARTRATE
     Dosage: UNK
     Dates: start: 20160816
  2. NICOTINE. [Concomitant]
     Active Substance: NICOTINE
     Dosage: 1DF DAILY TO BE APPLIED
     Dates: start: 20160816

REACTIONS (4)
  - Heart rate increased [Recovered/Resolved]
  - Tachycardia [Unknown]
  - Blood pressure increased [Recovered/Resolved]
  - Dizziness [Recovered/Resolved]

NARRATIVE: CASE EVENT DATE: 20160816
